FAERS Safety Report 13534586 (Version 6)
Quarter: 2017Q3

REPORT INFORMATION
  Report Type: Report from Study
  Country: US (occurrence: US)
  Receive Date: 20170511
  Receipt Date: 20170922
  Transmission Date: 20171127
  Serious: Yes (Other)
  Sender: FDA-Public Use
  Company Number: US-PFIZER INC-2017147732

PATIENT
  Age: 56 Year
  Sex: Female

DRUGS (1)
  1. IBRANCE [Suspect]
     Active Substance: PALBOCICLIB
     Indication: BREAST CANCER
     Dosage: 125 MG, DAILY
     Route: 048
     Dates: start: 20170329

REACTIONS (17)
  - Fatigue [Not Recovered/Not Resolved]
  - Anaemia [Unknown]
  - Dyspepsia [Unknown]
  - Decreased appetite [Unknown]
  - Alopecia [Unknown]
  - Hypokalaemia [Unknown]
  - Bone marrow failure [Unknown]
  - Headache [Recovering/Resolving]
  - Rash pruritic [Unknown]
  - Abdominal pain [Recovered/Resolved]
  - Erythema [Unknown]
  - Stomatitis [Not Recovered/Not Resolved]
  - Bone pain [Not Recovered/Not Resolved]
  - Leukopenia [Not Recovered/Not Resolved]
  - Neutropenia [Unknown]
  - Constipation [Unknown]
  - Pruritus [Unknown]

NARRATIVE: CASE EVENT DATE: 2017
